FAERS Safety Report 4273861-7 (Version None)
Quarter: 2004Q1

REPORT INFORMATION
  Report Type: 
  Country: None (occurrence: None)
  Receive Date: 20040115
  Receipt Date: 20040112
  Transmission Date: 20041129
  Serious: Yes (Hospitalization)
  Sender: FDA-Public Use
  Company Number: 2003191463US

PATIENT
  Age: 56 Year
  Sex: Male

DRUGS (10)
  1. DELTASONE [Suspect]
     Dosage: 10 MG, QD, ORAL
     Route: 048
     Dates: start: 20000101, end: 20030807
  2. DELTASONE [Suspect]
     Dosage: 10 MG, QD, ORAL
     Route: 048
     Dates: start: 20031001
  3. VICODIN [Concomitant]
  4. AMITRIPTYLINE HCL [Concomitant]
  5. RANITIDINE [Concomitant]
  6. VENLAFAXINE HCL [Concomitant]
  7. RAMIPRIL [Concomitant]
  8. FELODIPINE [Concomitant]
  9. ANAKINRA [Suspect]
     Indication: RHEUMATOID ARTHRITIS
     Dosage: 100MG ,QD ORAL
     Route: 048
     Dates: start: 20030307, end: 20030807
  10. ANAKINRA [Suspect]
     Indication: RHEUMATOID ARTHRITIS
     Dosage: 100MG ,QD ORAL
     Route: 048
     Dates: start: 20031001

REACTIONS (3)
  - BURSITIS INFECTIVE [None]
  - CONDITION AGGRAVATED [None]
  - RHEUMATOID ARTHRITIS [None]
